FAERS Safety Report 18867481 (Version 3)
Quarter: 2021Q1

REPORT INFORMATION
  Report Type: Spontaneous
  Country: US (occurrence: US)
  Receive Date: 20210209
  Receipt Date: 20210318
  Transmission Date: 20210420
  Serious: Yes (Other)
  Sender: FDA-Public Use
  Company Number: US-GLAXOSMITHKLINE-USCH2021004523

PATIENT
  Sex: Female

DRUGS (1)
  1. SENSODYNE REPAIR AND PROTECT EXTRA FRESH [Suspect]
     Active Substance: STANNOUS FLUORIDE
     Indication: DENTAL CLEANING

REACTIONS (2)
  - Haemorrhage [Unknown]
  - Product complaint [Unknown]
